FAERS Safety Report 19563596 (Version 1)
Quarter: 2021Q3

REPORT INFORMATION
  Report Type: Spontaneous
  Country: US (occurrence: US)
  Receive Date: 20210716
  Receipt Date: 20210716
  Transmission Date: 20211014
  Serious: Yes (Other)
  Sender: FDA-Public Use
  Company Number: US-SUN PHARMACEUTICAL INDUSTRIES LTD-2021R1-303709

PATIENT
  Sex: Male

DRUGS (3)
  1. ALLOPURINOL. [Suspect]
     Active Substance: ALLOPURINOL
     Indication: ACUTE LYMPHOCYTIC LEUKAEMIA
     Dosage: 103 MILLIGRAM, DAILY
     Route: 065
  2. ALLOPURINOL. [Suspect]
     Active Substance: ALLOPURINOL
     Dosage: 100 MILLIGRAM/SQ. METER
     Route: 065
  3. ALLOPURINOL. [Suspect]
     Active Substance: ALLOPURINOL
     Dosage: 39 MILLIGRAM/SQ. METER
     Route: 065

REACTIONS (2)
  - Thrombocytopenia [Unknown]
  - Splenomegaly [Unknown]
